FAERS Safety Report 9983774 (Version 1)
Quarter: 2014Q1

REPORT INFORMATION
  Report Type: Spontaneous
  Country: CA (occurrence: CA)
  Receive Date: 20140307
  Receipt Date: 20140307
  Transmission Date: 20141002
  Serious: Yes (Death)
  Sender: FDA-Public Use
  Company Number: CA-GLAXOSMITHKLINE-A1063592A

PATIENT
  Sex: Female

DRUGS (3)
  1. TYKERB [Suspect]
     Indication: BREAST CANCER METASTATIC
     Dosage: 1250MG UNKNOWN
     Route: 048
     Dates: start: 20130506
  2. XELODA [Suspect]
     Indication: BREAST CANCER METASTATIC
     Dosage: 1800MG UNKNOWN
     Route: 048
     Dates: start: 20130506
  3. HERCEPTIN [Concomitant]
     Indication: BREAST CANCER METASTATIC
     Dosage: 483MG UNKNOWN
     Route: 042
     Dates: start: 20120613, end: 20130506

REACTIONS (1)
  - Malignant neoplasm progression [Fatal]
